FAERS Safety Report 4621804-6 (Version None)
Quarter: 2005Q1

REPORT INFORMATION
  Report Type: 
  Country: None (occurrence: None)
  Receive Date: 20050329
  Receipt Date: 20050315
  Transmission Date: 20050727
  Serious: Yes (Hospitalization)
  Sender: FDA-Public Use
  Company Number: FR-ROCHE-398694

PATIENT
  Age: 50 Year
  Sex: Female

DRUGS (5)
  1. TAMIFLU [Suspect]
     Route: 048
     Dates: start: 20050208, end: 20050208
  2. BRONKIREX [Suspect]
     Route: 048
     Dates: start: 20050208, end: 20050208
  3. NAXY [Suspect]
     Route: 048
     Dates: start: 20050208, end: 20050208
  4. LOCABIOTAL [Suspect]
     Route: 055
     Dates: start: 20050208, end: 20050208
  5. DOLIPRANE [Suspect]
     Route: 048
     Dates: start: 20050208, end: 20050208

REACTIONS (10)
  - BLOOD PRESSURE INCREASED [None]
  - CARDIAC ARREST [None]
  - CYTOLYTIC HEPATITIS [None]
  - ELECTROCARDIOGRAM QT PROLONGED [None]
  - EXTRAPYRAMIDAL DISORDER [None]
  - HYPOKALAEMIA [None]
  - LACTIC ACIDOSIS [None]
  - NERVOUS SYSTEM DISORDER [None]
  - SOMNOLENCE [None]
  - TORSADE DE POINTES [None]
